FAERS Safety Report 22328410 (Version 2)
Quarter: 2023Q2

REPORT INFORMATION
  Report Type: Spontaneous
  Country: US (occurrence: US)
  Receive Date: 20230517
  Receipt Date: 20230628
  Transmission Date: 20230722
  Serious: No
  Sender: FDA-Public Use
  Company Number: US-BAUSCHBL-2023BNL004051

PATIENT
  Age: 73 Year
  Sex: Female
  Weight: 63.106 kg

DRUGS (4)
  1. ALAWAY [Suspect]
     Active Substance: KETOTIFEN FUMARATE
     Indication: Eye pruritus
     Route: 047
     Dates: start: 202304, end: 202304
  2. ALAWAY [Suspect]
     Active Substance: KETOTIFEN FUMARATE
     Indication: Lacrimation increased
  3. METFORMIN [Concomitant]
     Active Substance: METFORMIN HYDROCHLORIDE
     Indication: Product used for unknown indication
  4. LEVOTHYROXINE [Concomitant]
     Active Substance: LEVOTHYROXINE
     Indication: Product used for unknown indication

REACTIONS (1)
  - Eye irritation [Unknown]
